FAERS Safety Report 7524529-2 (Version None)
Quarter: 2011Q2

REPORT INFORMATION
  Report Type: 
  Country: None (occurrence: None)
  Receive Date: 20110606
  Receipt Date: 20110519
  Transmission Date: 20111010
  Serious: Yes (Hospitalization, Other)
  Sender: FDA-Public Use
  Company Number: US-BAYER-201029744NA

PATIENT
  Age: 35 Year
  Sex: Female
  Weight: 68 kg

DRUGS (4)
  1. YAZ [Suspect]
     Indication: UTERINE HAEMORRHAGE
     Dosage: UNK
     Dates: start: 20070201, end: 20090101
  2. BUSPIRONE HCL [Concomitant]
     Indication: ANXIETY
     Dosage: UNK
     Route: 048
     Dates: end: 20080530
  3. LUNESTA [Concomitant]
     Indication: SLEEP DISORDER
     Route: 048
  4. LORAZEPAM [Concomitant]
     Indication: ANXIETY

REACTIONS (4)
  - PAINFUL RESPIRATION [None]
  - PULMONARY EMBOLISM [None]
  - PAIN IN EXTREMITY [None]
  - DEEP VEIN THROMBOSIS [None]
